FAERS Safety Report 7065271-4 (Version None)
Quarter: 2010Q4

REPORT INFORMATION
  Report Type: 
  Country: None (occurrence: None)
  Receive Date: 20101027
  Receipt Date: 20101022
  Transmission Date: 20110411
  Serious: Yes (Death, Other)
  Sender: FDA-Public Use
  Company Number: IE-ROCHE-601357

PATIENT
  Sex: Male

DRUGS (13)
  1. MIRCERA [Suspect]
     Route: 058
     Dates: start: 20081015
  2. MIRCERA [Suspect]
     Dosage: STRENGTH REPORTED: 450 MCG DOSE INCREASED
     Route: 058
     Dates: start: 20081212, end: 20090701
  3. BETALOC [Concomitant]
     Indication: HYPERTENSION
     Route: 048
  4. DIAMICRON [Concomitant]
     Dosage: DRUG NAME RPTD AS DIAMICRON MR
     Route: 048
  5. DIOVAN [Concomitant]
     Route: 048
     Dates: start: 20070710
  6. GALFER [Concomitant]
     Route: 048
  7. INNOHEP [Concomitant]
     Dosage: AT DIALYSIS
     Dates: start: 20070601
  8. LIPITOR [Concomitant]
     Dosage: 10 MG ORAL NOCHTE(AT NIGHT).
     Route: 048
  9. LERCANIDIPINE [Concomitant]
     Indication: HYPERTENSION
     Dosage: TRADE NAME RPTD AS ZANADIP
     Route: 048
  10. OROVITE [Concomitant]
     Route: 048
  11. NEURONTIN [Concomitant]
  12. ZOTON [Concomitant]
     Indication: PROPHYLAXIS
     Route: 048
  13. ARANESP [Concomitant]
     Dates: start: 20080401

REACTIONS (3)
  - DEATH [None]
  - HAEMOGLOBIN DECREASED [None]
  - HEPATIC LESION [None]
